FAERS Safety Report 6155298-9 (Version None)
Quarter: 2009Q2

REPORT INFORMATION
  Report Type: 
  Country: None (occurrence: None)
  Receive Date: 20090415
  Receipt Date: 20090407
  Transmission Date: 20091009
  Serious: Yes (Other)
  Sender: FDA-Public Use
  Company Number: US-ASTRAZENECA-2009UW08784

PATIENT
  Sex: Male

DRUGS (5)
  1. SEROQUEL XR [Suspect]
     Route: 048
  2. SEROQUEL [Suspect]
     Route: 048
  3. CLOZAPINE [Concomitant]
  4. FLUOXETINE [Concomitant]
  5. PAXIL [Concomitant]

REACTIONS (2)
  - DYSURIA [None]
  - URINARY RETENTION [None]
